FAERS Safety Report 21286359 (Version 5)
Quarter: 2023Q1

REPORT INFORMATION
  Report Type: Report from Study
  Country: CA (occurrence: CA)
  Receive Date: 20220902
  Receipt Date: 20230126
  Transmission Date: 20230418
  Serious: Yes (Hospitalization, Other)
  Sender: FDA-Public Use
  Company Number: CA-TEVA-2022-CA-2025318

PATIENT
  Age: 66 Year
  Sex: Female
  Weight: 66 kg

DRUGS (8)
  1. CINQAIR [Suspect]
     Active Substance: RESLIZUMAB
     Indication: Asthma
     Dosage: LAST INFUSION DATE: 09-APR-2022?DOSE: 200.00 / 0
     Route: 042
     Dates: start: 20170726
  2. CINQAIR [Suspect]
     Active Substance: RESLIZUMAB
     Route: 042
     Dates: start: 20170726
  3. CINQAIR [Suspect]
     Active Substance: RESLIZUMAB
     Dosage: LAST INFUSION DATE: 23-DEC-2022
     Route: 042
     Dates: start: 20170726
  4. VENTOLIN [Concomitant]
     Active Substance: ALBUTEROL SULFATE
     Indication: Product used for unknown indication
     Dosage: 0-4 PUFFS WEEKS
     Route: 065
  5. ALVESCO [Concomitant]
     Active Substance: CICLESONIDE
     Indication: Product used for unknown indication
     Dosage: 200;  2 PUFFS
     Route: 065
  6. ZENHALE [Concomitant]
     Active Substance: FORMOTEROL FUMARATE\MOMETASONE FUROATE
     Indication: Product used for unknown indication
     Dosage: 200/5 2 PUFFS PRN
     Route: 065
  7. XOLAIR [Concomitant]
     Active Substance: OMALIZUMAB
     Indication: Product used for unknown indication
     Route: 065
  8. PREDNISONE [Concomitant]
     Active Substance: PREDNISONE
     Indication: Product used for unknown indication
     Route: 065

REACTIONS (13)
  - Coronavirus infection [Unknown]
  - Organising pneumonia [Unknown]
  - Central venous catheterisation [Unknown]
  - Asthma [Recovering/Resolving]
  - Dyspnoea [Unknown]
  - Cough [Unknown]
  - Heart rate increased [Recovered/Resolved]
  - Oxygen saturation decreased [Not Recovered/Not Resolved]
  - Blood pressure increased [Recovered/Resolved]
  - Device issue [Unknown]
  - Inappropriate schedule of product administration [Unknown]
  - Product supply issue [Unknown]
  - Incorrect dose administered [Unknown]

NARRATIVE: CASE EVENT DATE: 20220101
